FAERS Safety Report 4607437-6 (Version None)
Quarter: 2005Q1

REPORT INFORMATION
  Report Type: 
  Country: None (occurrence: None)
  Receive Date: 20050314
  Receipt Date: 20050301
  Transmission Date: 20050727
  Serious: Yes (Hospitalization)
  Sender: FDA-Public Use
  Company Number: SI-ROCHE-397035

PATIENT
  Sex: Male

DRUGS (3)
  1. TAMIFLU [Suspect]
     Indication: DRUG USE FOR UNKNOWN INDICATION
     Route: 065
  2. TAMIFLU [Suspect]
     Route: 065
  3. PARACETAMOL [Concomitant]
     Dosage: TAKEN ONCE.

REACTIONS (2)
  - HYPERSENSITIVITY [None]
  - URTICARIA [None]
